FAERS Safety Report 5158658-8 (Version None)
Quarter: 2006Q4

REPORT INFORMATION
  Report Type: 
  Country: None (occurrence: None)
  Receive Date: 20061128
  Receipt Date: 20061120
  Transmission Date: 20070319
  Serious: Yes (Life-Threatening)
  Sender: FDA-Public Use
  Company Number: 2006SE06247

PATIENT
  Age: 31632 Day
  Sex: Male

DRUGS (5)
  1. BLOPRESS TABLETS 2 [Suspect]
     Indication: HYPERTENSION
     Route: 048
     Dates: start: 20060925, end: 20061024
  2. SEPAMIT R [Concomitant]
     Indication: HYPERTENSION
     Route: 048
     Dates: end: 20061024
  3. SEPAMIT R [Concomitant]
     Route: 048
     Dates: start: 20061030
  4. ASPIRIN [Concomitant]
     Indication: ANTIPLATELET THERAPY
     Route: 048
     Dates: end: 20061024
  5. GASTER D [Concomitant]
     Indication: PROPHYLAXIS AGAINST GASTROINTESTINAL ULCER
     Route: 048
     Dates: end: 20061024

REACTIONS (5)
  - HEPATIC NECROSIS [None]
  - INFECTION [None]
  - LIVER DISORDER [None]
  - PYREXIA [None]
  - VIRAL INFECTION [None]
